FAERS Safety Report 6800895-8 (Version None)
Quarter: 2010Q2

REPORT INFORMATION
  Report Type: 
  Country: None (occurrence: None)
  Receive Date: 20100624
  Receipt Date: 20100617
  Transmission Date: 20101027
  Serious: Yes (Hospitalization)
  Sender: FDA-Public Use
  Company Number: 2010SP034378

PATIENT
  Age: 38 Year
  Sex: Female

DRUGS (6)
  1. REMERON [Suspect]
     Indication: DEPRESSION
     Dosage: 15 MG;QD;PO
     Route: 048
     Dates: start: 20100527, end: 20100610
  2. ZOLOFT [Concomitant]
  3. SILECE [Concomitant]
  4. MYSLEE [Concomitant]
  5. LORAZEPAM [Concomitant]
  6. GASMOTIN [Concomitant]

REACTIONS (4)
  - DIZZINESS [None]
  - FALL [None]
  - HEAD INJURY [None]
  - SYNCOPE [None]
